FAERS Safety Report 8618498-1 (Version None)
Quarter: 2012Q3

REPORT INFORMATION
  Report Type: 
  Country: None (occurrence: None)
  Receive Date: 20120814
  Receipt Date: 20120814
  Transmission Date: 20120928
  Serious: Yes (Hospitalization)
  Sender: FDA-Public Use
  Company Number: None

PATIENT
  Sex: Male
  Weight: 60.78 kg

DRUGS (2)
  1. TAXOTERE [Suspect]
     Dosage: 130 MG
     Dates: start: 20120709, end: 20120730
  2. CARBOPLATIN [Suspect]
     Dosage: 580 MG
     Dates: start: 20120709, end: 20120730

REACTIONS (2)
  - INFLAMMATION [None]
  - CELLULITIS [None]
